FAERS Safety Report 13963907 (Version 1)
Quarter: 2017Q3

REPORT INFORMATION
  Report Type: Spontaneous
  Country: US (occurrence: None)
  Receive Date: 20170913
  Receipt Date: 20170913
  Transmission Date: 20171128
  Serious: No
  Sender: FDA-Public Use
  Company Number: None

PATIENT
  Age: 66 Year
  Sex: Female
  Weight: 55.34 kg

DRUGS (10)
  1. ATORVASTATIN [Concomitant]
     Active Substance: ATORVASTATIN
  2. METRONIDAZOLE 500MG TABLETS [Suspect]
     Active Substance: METRONIDAZOLE
     Indication: VAGINAL INFECTION
     Route: 048
     Dates: start: 20170826, end: 20170829
  3. FISH OIL [Concomitant]
     Active Substance: FISH OIL
  4. CLOPIDOGREL [Concomitant]
     Active Substance: CLOPIDOGREL BISULFATE
  5. RANITIDINE. [Concomitant]
     Active Substance: RANITIDINE
  6. FLUTICASONE PROPIONATE. [Concomitant]
     Active Substance: FLUTICASONE PROPIONATE
  7. VITAMIN B12 [Concomitant]
     Active Substance: CYANOCOBALAMIN
  8. CETIRIZINE [Concomitant]
     Active Substance: CETIRIZINE HYDROCHLORIDE
  9. CALCIUM [Concomitant]
     Active Substance: CALCIUM
  10. VENTOLIN HFA [Concomitant]
     Active Substance: ALBUTEROL SULFATE

REACTIONS (12)
  - Feeling hot [None]
  - Urine abnormality [None]
  - Oral candidiasis [None]
  - Vulvovaginal ulceration [None]
  - Chromaturia [None]
  - Erythema [None]
  - Abdominal pain upper [None]
  - Tongue discomfort [None]
  - Vulvovaginal dryness [None]
  - Thirst [None]
  - Dysgeusia [None]
  - Flushing [None]

NARRATIVE: CASE EVENT DATE: 20170828
